FAERS Safety Report 15193332 (Version 2)
Quarter: 2018Q4

REPORT INFORMATION
  Report Type: Spontaneous
  Country: US (occurrence: US)
  Receive Date: 20180725
  Receipt Date: 20181211
  Transmission Date: 20190204
  Serious: No
  Sender: FDA-Public Use
  Company Number: US-BRISTOL-MYERS SQUIBB COMPANY-BMS-2018-067431

PATIENT
  Sex: Female
  Weight: 72.56 kg

DRUGS (2)
  1. OPDIVO [Suspect]
     Active Substance: NIVOLUMAB
     Indication: MALIGNANT MELANOMA
     Dosage: UNK UNK, Q2WK
     Route: 042
     Dates: start: 201803
  2. LEVOTHYROXINE. [Interacting]
     Active Substance: LEVOTHYROXINE
     Indication: PRODUCT USED FOR UNKNOWN INDICATION
     Route: 065

REACTIONS (8)
  - Impaired work ability [Unknown]
  - Night sweats [Unknown]
  - Drug interaction [Unknown]
  - Dizziness [Unknown]
  - Fatigue [Unknown]
  - Malaise [Unknown]
  - Therapeutic response unexpected [Unknown]
  - Feeling abnormal [Unknown]
